FAERS Safety Report 6806498-3 (Version None)
Quarter: 2010Q2

REPORT INFORMATION
  Report Type: 
  Country: None (occurrence: None)
  Receive Date: 20100629
  Receipt Date: 20080325
  Transmission Date: 20101027
  Serious: No
  Sender: FDA-Public Use
  Company Number: US-PFIZER INC-2008027049

PATIENT
  Sex: Male

DRUGS (3)
  1. XANAX [Suspect]
  2. KLONOPIN [Interacting]
  3. ROZEREM [Interacting]

REACTIONS (2)
  - DRUG INEFFECTIVE [None]
  - DRUG INTERACTION [None]
